FAERS Safety Report 8271618-3 (Version None)
Quarter: 2012Q2

REPORT INFORMATION
  Report Type: 
  Country: None (occurrence: None)
  Receive Date: 20120410
  Receipt Date: 20120403
  Transmission Date: 20120825
  Serious: Yes (Hospitalization)
  Sender: FDA-Public Use
  Company Number: US-GLAXOSMITHKLINE-A0938846A

PATIENT
  Age: 73 Year
  Sex: Female

DRUGS (1)
  1. AVANDIA [Suspect]
     Indication: DIABETES MELLITUS
     Route: 048
     Dates: start: 20020606, end: 20081001

REACTIONS (6)
  - PARALYSIS [None]
  - CEREBROVASCULAR ACCIDENT [None]
  - CARDIOVASCULAR DISORDER [None]
  - TRANSIENT ISCHAEMIC ATTACK [None]
  - HAEMORRHAGE INTRACRANIAL [None]
  - MYOCARDIAL INFARCTION [None]
